FAERS Safety Report 6371263-0 (Version None)
Quarter: 2009Q3

REPORT INFORMATION
  Report Type: 
  Country: None (occurrence: None)
  Receive Date: 20090923
  Receipt Date: 20071220
  Transmission Date: 20100115
  Serious: Yes (Hospitalization, Other)
  Sender: FDA-Public Use
  Company Number: US-ASTRAZENECA-2007UW05614

PATIENT
  Age: 2198 Day
  Sex: Male
  Weight: 42.6 kg

DRUGS (12)
  1. SEROQUEL [Suspect]
     Indication: SLEEP DISORDER
     Dosage: 62.5MG-100MG, 50 MG AT NIGHT (TAPERING)
     Route: 048
     Dates: start: 20000301, end: 20060301
  2. SEROQUEL [Suspect]
     Indication: ATTENTION DEFICIT/HYPERACTIVITY DISORDER
     Dosage: 62.5MG-100MG, 50 MG AT NIGHT (TAPERING)
     Route: 048
     Dates: start: 20000301, end: 20060301
  3. SEROQUEL [Suspect]
     Indication: AGITATION
     Dosage: 62.5MG-100MG, 50 MG AT NIGHT (TAPERING)
     Route: 048
     Dates: start: 20000301, end: 20060301
  4. SEROQUEL [Suspect]
     Indication: IRRITABILITY
     Dosage: 62.5MG-100MG, 50 MG AT NIGHT (TAPERING)
     Route: 048
     Dates: start: 20000301, end: 20060301
  5. SEROQUEL [Suspect]
     Dosage: 25 TO 100 MG
     Route: 048
     Dates: start: 20000412, end: 20060301
  6. SEROQUEL [Suspect]
     Dosage: 25 TO 100 MG
     Route: 048
     Dates: start: 20000412, end: 20060301
  7. SEROQUEL [Suspect]
     Dosage: 25 TO 100 MG
     Route: 048
     Dates: start: 20000412, end: 20060301
  8. SEROQUEL [Suspect]
     Dosage: 25 TO 100 MG
     Route: 048
     Dates: start: 20000412, end: 20060301
  9. ADDERALL 10 [Concomitant]
  10. RITALIN [Concomitant]
     Indication: ATTENTION DEFICIT/HYPERACTIVITY DISORDER
     Dosage: 20-60 MG
     Dates: start: 19990101
  11. VYVANSE [Concomitant]
  12. CONCERTA [Concomitant]

REACTIONS (2)
  - DIABETIC KETOACIDOSIS [None]
  - TYPE 1 DIABETES MELLITUS [None]
